FAERS Safety Report 8533539-8 (Version None)
Quarter: 2012Q3

REPORT INFORMATION
  Report Type: 
  Country: None (occurrence: None)
  Receive Date: 20120724
  Receipt Date: 20120718
  Transmission Date: 20120928
  Serious: Yes (Other)
  Sender: FDA-Public Use
  Company Number: US-PFIZER INC-2012174730

PATIENT
  Sex: Male
  Weight: 156 kg

DRUGS (3)
  1. METOPROLOL [Concomitant]
     Indication: HYPERTENSION
     Dosage: 100 MG,DAILY
  2. NORVASC [Concomitant]
     Indication: HYPERTENSION
     Dosage: 5 MG, DAILY
  3. CELECOXIB [Suspect]
     Indication: ARTHRITIS
     Dosage: UNK
     Dates: end: 20120101

REACTIONS (1)
  - BACK INJURY [None]
